FAERS Safety Report 4424176-5 (Version None)
Quarter: 2004Q3

REPORT INFORMATION
  Report Type: 
  Country: None (occurrence: None)
  Receive Date: 20040810
  Receipt Date: 20040810
  Transmission Date: 20050211
  Serious: Yes (Life-Threatening)
  Sender: FDA-Public Use
  Company Number: None

PATIENT
  Age: 42 Year
  Sex: Female
  Weight: 53 kg

DRUGS (7)
  1. SEVOFLURANE [Suspect]
     Indication: ANAESTHESIA
     Dates: start: 20040702
  2. VANCOMYCIN [Suspect]
     Dosage: 1 G Q 12H IV [4 DOSES]
     Route: 042
     Dates: start: 20040701
  3. ZOSYN [Concomitant]
  4. MEPERGAN FORTIS [Concomitant]
  5. RESTORIL [Concomitant]
  6. DOCUSATE [Concomitant]
  7. DEMEROL [Concomitant]

REACTIONS (2)
  - DRUG LEVEL INCREASED [None]
  - RENAL FAILURE [None]
